FAERS Safety Report 26059157 (Version 2)
Quarter: 2025Q4

REPORT INFORMATION
  Report Type: Report from Study
  Country: EU (occurrence: EU)
  Receive Date: 20251118
  Receipt Date: 20251121
  Transmission Date: 20260118
  Serious: Yes (Death, Hospitalization, Disabling)
  Sender: JOHNSON AND JOHNSON
  Company Number: EU-JNJFOC-20250934846

PATIENT
  Age: 69 Year
  Sex: Male

DRUGS (6)
  1. TALQUETAMAB [Suspect]
     Active Substance: TALQUETAMAB
     Indication: Plasma cell myeloma
     Dosage: CYCLE 1
     Route: 065
     Dates: start: 20250723
  2. TALQUETAMAB [Suspect]
     Active Substance: TALQUETAMAB
     Dosage: CYCLE 1
     Route: 065
     Dates: start: 20250728
  3. TALQUETAMAB [Suspect]
     Active Substance: TALQUETAMAB
     Dosage: CYCLE 1
     Route: 065
     Dates: start: 20250731
  4. TALQUETAMAB [Suspect]
     Active Substance: TALQUETAMAB
     Dosage: CYCLE 1
     Route: 065
     Dates: start: 20250804
  5. TALQUETAMAB [Suspect]
     Active Substance: TALQUETAMAB
     Dosage: CYCLE 2
     Route: 065
     Dates: start: 20250818
  6. CARVYKTI [Suspect]
     Active Substance: CILTACABTAGENE AUTOLEUCEL
     Indication: Plasma cell myeloma
     Route: 065

REACTIONS (2)
  - Ileus paralytic [Fatal]
  - Pseudomonal sepsis [Unknown]

NARRATIVE: CASE EVENT DATE: 20250903
